FAERS Safety Report 9407831 (Version 1)
Quarter: 2013Q3

REPORT INFORMATION
  Report Type: Spontaneous
  Country: CO (occurrence: CO)
  Receive Date: 20130718
  Receipt Date: 20130718
  Transmission Date: 20140515
  Serious: Yes (Hospitalization)
  Sender: FDA-Public Use
  Company Number: CO-AMGEN-COLSP2013031356

PATIENT
  Age: 72 Year
  Sex: Female

DRUGS (10)
  1. ENBREL [Suspect]
     Indication: RHEUMATOID ARTHRITIS
     Dosage: 25 MG, EACH 15 DAYS
     Route: 058
     Dates: start: 2011, end: 20130428
  2. ENBREL [Suspect]
     Dosage: 25 MG, EACH 15 DAYS
     Route: 058
  3. INSULIN [Suspect]
     Dosage: UNK
     Route: 065
  4. GLIBENCLAMIDE [Concomitant]
     Indication: DIABETES MELLITUS
     Dosage: 5 MG, 3X/DAY
     Route: 048
     Dates: start: 2005
  5. METFORMIN [Concomitant]
     Indication: DIABETES MELLITUS
     Dosage: 850 MG, 3X/DAY
     Route: 048
     Dates: start: 2005
  6. DEFLAZACORT [Concomitant]
     Indication: RHEUMATOID ARTHRITIS
     Dosage: 6 MG, 1X/DAY
     Route: 048
     Dates: start: 2011
  7. ARAVA [Concomitant]
     Indication: RHEUMATOID ARTHRITIS
     Dosage: 20 MG, 1X/DAY
     Route: 048
     Dates: start: 2011
  8. LEFLUNOMIDE [Concomitant]
     Indication: RHEUMATOID ARTHRITIS
     Dosage: 20 MG, QD
     Route: 048
     Dates: start: 2011
  9. ACETAMINOPHEN W/CODEINE [Concomitant]
     Indication: RHEUMATOID ARTHRITIS
     Dosage: 500 MG, AS NECESSARY
     Route: 048
     Dates: start: 2011
  10. CODEINE [Concomitant]
     Dosage: UNK

REACTIONS (12)
  - Immune system disorder [Recovered/Resolved]
  - Rash [Recovered/Resolved]
  - Stomatitis [Recovered/Resolved]
  - Pain [Recovered/Resolved]
  - Fatigue [Recovered/Resolved]
  - Discomfort [Recovered/Resolved]
  - Blood glucose increased [Not Recovered/Not Resolved]
  - Blood triglycerides increased [Not Recovered/Not Resolved]
  - Renal hypertension [Not Recovered/Not Resolved]
  - Aggression [Unknown]
  - Urinary tract infection [Unknown]
  - Influenza [Recovered/Resolved]
